FAERS Safety Report 17019013 (Version 1)
Quarter: 2019Q4

REPORT INFORMATION
  Report Type: Spontaneous
  Country: US (occurrence: US)
  Receive Date: 20191112
  Receipt Date: 20191112
  Transmission Date: 20200122
  Serious: No
  Sender: FDA-Public Use
  Company Number: US-009507513-1911USA003473

PATIENT
  Age: 25 Year
  Sex: Female

DRUGS (1)
  1. STEGLATRO [Suspect]
     Active Substance: ERTUGLIFLOZIN PIDOLATE
     Indication: TYPE 2 DIABETES MELLITUS
     Dosage: 1 TABLET DAILY (QD)
     Route: 048

REACTIONS (2)
  - Confusional state [Recovered/Resolved]
  - Vomiting [Recovered/Resolved]
